FAERS Safety Report 7959719-8 (Version None)
Quarter: 2011Q4

REPORT INFORMATION
  Report Type: 
  Country: None (occurrence: None)
  Receive Date: 20111206
  Receipt Date: 20111129
  Transmission Date: 20120403
  Serious: Yes (Other)
  Sender: FDA-Public Use
  Company Number: US-GLAXOSMITHKLINE-A0949161A

PATIENT
  Sex: Male

DRUGS (1)
  1. VOTRIENT [Suspect]
     Indication: RENAL CANCER
     Dosage: 800MG PER DAY
     Route: 065
     Dates: start: 20110928, end: 20111025

REACTIONS (10)
  - HEPATIC ENZYME ABNORMAL [None]
  - HYPERTENSION [None]
  - GAIT DISTURBANCE [None]
  - STOMATITIS [None]
  - HEADACHE [None]
  - FATIGUE [None]
  - OROPHARYNGEAL BLISTERING [None]
  - DYSGEUSIA [None]
  - DIZZINESS [None]
  - BACK PAIN [None]
